FAERS Safety Report 12468679 (Version 10)
Quarter: 2019Q3

REPORT INFORMATION
  Report Type: Report from Study
  Country: CA (occurrence: CA)
  Receive Date: 20160615
  Receipt Date: 20190923
  Transmission Date: 20191004
  Serious: Yes (Other)
  Sender: FDA-Public Use
  Company Number: PHHY2011CA13849

PATIENT
  Age: 51 Year
  Sex: Female

DRUGS (3)
  1. SANDOSTATIN LAR DEPOT [Suspect]
     Active Substance: OCTREOTIDE ACETATE
     Indication: CARCINOID TUMOUR
     Dosage: 30 MG, EVERY 3 WEEKS
     Route: 030
     Dates: start: 20110211
  2. SANDOSTATIN LAR DEPOT [Suspect]
     Active Substance: OCTREOTIDE ACETATE
     Dosage: 30 MG, EVERY 3 WEEKS
     Route: 030
     Dates: start: 20180213
  3. SANDOSTATIN LAR DEPOT [Suspect]
     Active Substance: OCTREOTIDE ACETATE
     Dosage: UNK
     Route: 030
     Dates: start: 20180508

REACTIONS (17)
  - Inappropriate schedule of product administration [Unknown]
  - Uterine neoplasm [Unknown]
  - Blood pressure decreased [Unknown]
  - Injection site erythema [Unknown]
  - Injection site induration [Unknown]
  - Visual impairment [Not Recovered/Not Resolved]
  - Needle issue [Unknown]
  - Back pain [Unknown]
  - Second primary malignancy [Unknown]
  - Fatigue [Unknown]
  - Blood pressure systolic increased [Unknown]
  - Malignant neoplasm progression [Unknown]
  - Headache [Unknown]
  - Nausea [Unknown]
  - Discomfort [Unknown]
  - Injection site mass [Recovering/Resolving]
  - Syringe issue [Unknown]

NARRATIVE: CASE EVENT DATE: 20150709
